FAERS Safety Report 6337397-1 (Version None)
Quarter: 2009Q3

REPORT INFORMATION
  Report Type: 
  Country: None (occurrence: None)
  Receive Date: 20090901
  Receipt Date: 20090901
  Transmission Date: 20100115
  Serious: Yes (Hospitalization)
  Sender: FDA-Public Use
  Company Number: None

PATIENT
  Sex: Female
  Weight: 63.7 kg

DRUGS (1)
  1. CISPLATIN [Suspect]
     Dosage: 67 MG

REACTIONS (7)
  - DIARRHOEA [None]
  - DIZZINESS [None]
  - EAR PAIN [None]
  - NEUTROPHIL COUNT DECREASED [None]
  - PYREXIA [None]
  - SINUS HEADACHE [None]
  - WHITE BLOOD CELL COUNT DECREASED [None]
